FAERS Safety Report 4348481-6 (Version None)
Quarter: 2004Q2

REPORT INFORMATION
  Report Type: 
  Country: None (occurrence: None)
  Receive Date: 20040427
  Receipt Date: 20040210
  Transmission Date: 20050107
  Serious: No
  Sender: FDA-Public Use
  Company Number: US-GLAXOSMITHKLINE-A0497748A

PATIENT
  Age: 68 Year
  Sex: Female

DRUGS (4)
  1. VENTOLIN [Suspect]
     Indication: ASTHMA
     Dosage: 90MCG FOUR TIMES PER DAY
     Route: 055
     Dates: start: 20040101
  2. SYNTHROID [Concomitant]
  3. PRILOSEC [Concomitant]
  4. XOPENEX [Concomitant]
     Route: 055

REACTIONS (1)
  - DRUG INEFFECTIVE [None]
